FAERS Safety Report 9941201 (Version 1)
Quarter: 2014Q1

REPORT INFORMATION
  Report Type: Report from Study
  Country: US (occurrence: US)
  Receive Date: 20140303
  Receipt Date: 20140303
  Transmission Date: 20141002
  Serious: No
  Sender: FDA-Public Use
  Company Number: US-ABBVIE-13P-163-1042066-00

PATIENT
  Age: 60 Year
  Sex: Female

DRUGS (3)
  1. HUMIRA [Suspect]
     Indication: RHEUMATOID ARTHRITIS
     Dates: start: 20110415
  2. VITAMIN SUPPLEMENTS [Concomitant]
     Indication: RHEUMATOID ARTHRITIS
     Dosage: DAILY
  3. FISH OIL [Concomitant]
     Indication: RHEUMATOID ARTHRITIS

REACTIONS (3)
  - Decreased appetite [Recovered/Resolved]
  - Injection site haemorrhage [Recovered/Resolved]
  - Dysphonia [Recovered/Resolved]
